FAERS Safety Report 5408357-X (Version None)
Quarter: 2007Q3

REPORT INFORMATION
  Report Type: 
  Country: None (occurrence: None)
  Receive Date: 20070808
  Receipt Date: 20070614
  Transmission Date: 20080115
  Serious: Yes (Other)
  Sender: FDA-Public Use
  Company Number: US-PURDUE-USA_2007_0028039

PATIENT
  Sex: Male
  Weight: 92 kg

DRUGS (3)
  1. OXYCONTIN [Suspect]
     Indication: BACK PAIN
     Dosage: UNK, SEE TEXT
     Dates: start: 19990615, end: 20040907
  2. HYDROCODONE BITARTRATE + ACETAMINOPHEN [Concomitant]
  3. CODEINE PHOSPHATE AND ACETAMINOPHEN [Concomitant]

REACTIONS (9)
  - ANXIETY [None]
  - CONSTIPATION [None]
  - DIARRHOEA [None]
  - DRUG DEPENDENCE [None]
  - HEPATITIS C [None]
  - IRRITABILITY [None]
  - MUSCLE SPASMS [None]
  - NAUSEA [None]
  - SUICIDAL IDEATION [None]
